FAERS Safety Report 23815544 (Version 2)
Quarter: 2024Q2

REPORT INFORMATION
  Report Type: Spontaneous
  Country: CN (occurrence: CN)
  Receive Date: 20240503
  Receipt Date: 20240513
  Transmission Date: 20240715
  Serious: Yes (Death)
  Sender: FDA-Public Use
  Company Number: CN-AMGEN-CHNSP2024086624

PATIENT
  Age: 20 Year
  Sex: Male

DRUGS (3)
  1. BLINCYTO [Suspect]
     Active Substance: BLINATUMOMAB
     Indication: B-cell type acute leukaemia
     Dosage: 9 MICROGRAM, QD (ON DAYS 1 TO 7 OF THE FIRST COURSE)
     Route: 042
     Dates: start: 20220508
  2. BLINCYTO [Suspect]
     Active Substance: BLINATUMOMAB
     Dosage: 28 MICROGRAM, QD (N DAYS 8 TO DAY 28 OF THE FIRST COURSE)
     Route: 042
  3. BLINCYTO [Suspect]
     Active Substance: BLINATUMOMAB
     Dosage: UNK (14-DAY INTERVAL)
     Route: 042

REACTIONS (2)
  - B-cell type acute leukaemia [Fatal]
  - Therapy cessation [Unknown]
